FAERS Safety Report 10816413 (Version 1)
Quarter: 2015Q1

REPORT INFORMATION
  Report Type: Spontaneous
  Country: US (occurrence: US)
  Receive Date: 20150218
  Receipt Date: 20150218
  Transmission Date: 20150721
  Serious: Yes (Death)
  Sender: FDA-Public Use
  Company Number: US-INCYTE CORPORATION-2015IN000559

PATIENT
  Sex: Female

DRUGS (1)
  1. JAKAFI [Suspect]
     Active Substance: RUXOLITINIB
     Indication: T-CELL PROLYMPHOCYTIC LEUKAEMIA
     Dosage: UNKNOWN
     Route: 065

REACTIONS (5)
  - Thrombocytopenia [Unknown]
  - Product use issue [Unknown]
  - Drug resistance [Unknown]
  - Disease progression [Fatal]
  - T-cell prolymphocytic leukaemia [Fatal]
